FAERS Safety Report 12145463 (Version 3)
Quarter: 2016Q2

REPORT INFORMATION
  Report Type: Spontaneous
  Country: US (occurrence: US)
  Receive Date: 20160304
  Receipt Date: 20160519
  Transmission Date: 20160815
  Serious: No
  Sender: FDA-Public Use
  Company Number: US-BAYER-2016-041404

PATIENT
  Age: 60 Year
  Sex: Female

DRUGS (2)
  1. CLIMARA PRO [Suspect]
     Active Substance: ESTRADIOL\LEVONORGESTREL
     Indication: HOT FLUSH
     Dosage: UNK
     Route: 062
  2. CLIMARA PRO [Suspect]
     Active Substance: ESTRADIOL\LEVONORGESTREL
     Indication: HOT FLUSH
     Dosage: 1 DF, OW
     Route: 062
     Dates: start: 20160213

REACTIONS (9)
  - Metrorrhagia [Recovered/Resolved]
  - Device material issue [None]
  - Drug effect decreased [None]
  - Application site rash [Not Recovered/Not Resolved]
  - Product adhesion issue [None]
  - Product packaging quantity issue [None]
  - Product use issue [None]
  - Device use issue [None]
  - Skin irritation [None]

NARRATIVE: CASE EVENT DATE: 20160216
